FAERS Safety Report 21289973 (Version 1)
Quarter: 2022Q3

REPORT INFORMATION
  Report Type: Spontaneous
  Country: US (occurrence: None)
  Receive Date: 20220825
  Receipt Date: 20220825
  Transmission Date: 20221027
  Serious: Yes (Hospitalization, Other)
  Sender: FDA-Public Use
  Company Number: None

PATIENT
  Age: 29 Year
  Sex: Female
  Weight: 96.16 kg

DRUGS (7)
  1. TYLENOL [Suspect]
     Active Substance: ACETAMINOPHEN
     Indication: Migraine
     Dosage: FREQUENCY : AS NEEDED;?
     Route: 048
  2. VALTREX [Concomitant]
     Active Substance: VALACYCLOVIR HYDROCHLORIDE
  3. CANNABIDIOL\HERBALS [Concomitant]
     Active Substance: CANNABIDIOL\HERBALS
  4. NOVOLIN N [Concomitant]
     Active Substance: INSULIN HUMAN
  5. BENZONATATE [Concomitant]
     Active Substance: BENZONATATE
  6. UNSPECIFIED INGREDIENT [Concomitant]
     Active Substance: UNSPECIFIED INGREDIENT
  7. UNSPECIFIED ANTIBIOTIC [Concomitant]

REACTIONS (5)
  - Maternal exposure during pregnancy [None]
  - Foetal exposure during pregnancy [None]
  - Drug ineffective [None]
  - Cough [None]
  - Nasopharyngitis [None]

NARRATIVE: CASE EVENT DATE: 20220719
